FAERS Safety Report 17625827 (Version 2)
Quarter: 2020Q2

REPORT INFORMATION
  Report Type: Report from Study
  Country: FR (occurrence: FR)
  Receive Date: 20200404
  Receipt Date: 20200407
  Transmission Date: 20200713
  Serious: Yes (Other)
  Sender: FDA-Public Use
  Company Number: NVSC2020FR090320

PATIENT
  Age: 27 Year
  Sex: Female
  Weight: 123.6 kg

DRUGS (4)
  1. AUGMENTIN [Concomitant]
     Active Substance: AMOXICILLIN\CLAVULANATE POTASSIUM
     Indication: HIDRADENITIS
     Dosage: UNK
     Route: 065
     Dates: start: 20190607
  2. BISEPTINE [Concomitant]
     Active Substance: BENZALKONIUM CHLORIDE\BENZYL ALCOHOL\CHLORHEXIDINE
     Indication: HIDRADENITIS
     Dosage: UNK
     Route: 065
     Dates: start: 20191203
  3. BETAMETHASONE. [Concomitant]
     Active Substance: BETAMETHASONE
     Indication: HIDRADENITIS
     Dosage: UNK
     Route: 065
     Dates: start: 20191217
  4. SECUKINUMAB. [Suspect]
     Active Substance: SECUKINUMAB
     Indication: HIDRADENITIS
     Dosage: 300 MG, Q2W
     Route: 058
     Dates: start: 20200204, end: 20200305

REACTIONS (1)
  - Coronavirus infection [Recovered/Resolved]

NARRATIVE: CASE EVENT DATE: 20200313
